FAERS Safety Report 6639245-9 (Version None)
Quarter: 2010Q1

REPORT INFORMATION
  Report Type: 
  Country: None (occurrence: None)
  Receive Date: 20100315
  Receipt Date: 20100225
  Transmission Date: 20100710
  Serious: Yes (Death)
  Sender: FDA-Public Use
  Company Number: 2010VX000107

PATIENT
  Age: 23 Year
  Sex: Female

DRUGS (3)
  1. ACETAMINOPHEN AND CODEINE PHOSPHATE [Suspect]
     Indication: DRUG USE FOR UNKNOWN INDICATION
  2. METHADONE HCL [Suspect]
     Indication: DRUG USE FOR UNKNOWN INDICATION
  3. ALPRAZOLAM [Suspect]
     Indication: DRUG USE FOR UNKNOWN INDICATION

REACTIONS (12)
  - APNOEA [None]
  - COMPLETED SUICIDE [None]
  - CYANOSIS [None]
  - DIALYSIS [None]
  - HYPOTENSION [None]
  - OLIGURIA [None]
  - PERIPHERAL ISCHAEMIA [None]
  - POISONING [None]
  - SELF-MEDICATION [None]
  - SPUTUM DISCOLOURED [None]
  - TACHYCARDIA [None]
  - UNRESPONSIVE TO STIMULI [None]
